FAERS Safety Report 5708467-3 (Version None)
Quarter: 2008Q2

REPORT INFORMATION
  Report Type: 
  Country: None (occurrence: None)
  Receive Date: 20080417
  Receipt Date: 20080408
  Transmission Date: 20081010
  Serious: Yes (Other)
  Sender: FDA-Public Use
  Company Number: CA-PFIZER INC-2008012582

PATIENT
  Sex: Female

DRUGS (6)
  1. CHAMPIX [Suspect]
     Dosage: DAILY DOSE:1MG
     Route: 048
  2. EFFEXOR XR [Concomitant]
     Indication: DEPRESSION
     Dosage: DAILY DOSE:75MG
     Route: 048
  3. CELEXA [Concomitant]
     Indication: DEPRESSION
     Dosage: DAILY DOSE:60MG
     Route: 048
  4. FLUCONAZOLE [Concomitant]
     Route: 048
  5. CIPROFLOXACIN [Concomitant]
     Route: 048
  6. DIFLUCAN [Concomitant]
     Dates: start: 20080104, end: 20080105

REACTIONS (4)
  - EYE PAIN [None]
  - HEADACHE [None]
  - LOSS OF CONSCIOUSNESS [None]
  - VISUAL DISTURBANCE [None]
